FAERS Safety Report 17318901 (Version 2)
Quarter: 2020Q2

REPORT INFORMATION
  Report Type: Spontaneous
  Country: US (occurrence: US)
  Receive Date: 20200124
  Receipt Date: 20200411
  Transmission Date: 20200713
  Serious: Yes (Other)
  Sender: FDA-Public Use
  Company Number: US-BIOMARINAP-US-2020-127916

PATIENT
  Age: 23 Year
  Sex: Female
  Weight: 51.5 kg

DRUGS (1)
  1. PALYNZIQ [Suspect]
     Active Substance: PEGVALIASE-PQPZ
     Indication: PHENYLKETONURIA
     Dosage: UNK
     Route: 065
     Dates: start: 201903

REACTIONS (20)
  - Syncope [Recovering/Resolving]
  - Loss of consciousness [Recovering/Resolving]
  - Addison^s disease [Recovering/Resolving]
  - Myalgia [Recovering/Resolving]
  - Nausea [Recovering/Resolving]
  - Confusional state [Recovering/Resolving]
  - Decreased appetite [Recovering/Resolving]
  - Asthenia [Recovering/Resolving]
  - Hyponatraemia [Recovering/Resolving]
  - Dizziness [Recovering/Resolving]
  - Skin discolouration [Recovering/Resolving]
  - Arthralgia [Recovering/Resolving]
  - Fatigue [Recovering/Resolving]
  - Dehydration [Recovering/Resolving]
  - Diarrhoea [Recovering/Resolving]
  - Hypothyroidism [Unknown]
  - Drug ineffective [Unknown]
  - Hypotension [Recovering/Resolving]
  - Liver function test increased [Recovering/Resolving]
  - Vomiting [Recovering/Resolving]
